FAERS Safety Report 7299562-9 (Version None)
Quarter: 2010Q4

REPORT INFORMATION
  Report Type: 
  Country: None (occurrence: None)
  Receive Date: 20101223
  Receipt Date: 20100310
  Transmission Date: 20110411
  Serious: Yes (Other)
  Sender: FDA-Public Use
  Company Number: 304629

PATIENT
  Age: 47 Year
  Sex: Female
  Weight: 68 kg

DRUGS (3)
  1. LEVEMIR [Suspect]
     Indication: TYPE 1 DIABETES MELLITUS
     Dosage: 12 U, QD IN THE MORNING, 13 U, QD, 14 U, QD AT NIGHT, 15 LU, QD AT HS, 15 LU, QD IN AM, SC
     Route: 058
     Dates: start: 20100101
  2. NOVOLOG FLEXPEN (INSULIN ASPART)SOLUTION FOR INJECTION [Concomitant]
  3. LISINOPRIL [Concomitant]

REACTIONS (2)
  - BLOOD GLUCOSE FLUCTUATION [None]
  - HYPOGLYCAEMIC UNCONSCIOUSNESS [None]
